FAERS Safety Report 18211581 (Version 1)
Quarter: 2020Q3

REPORT INFORMATION
  Report Type: Spontaneous
  Country: US (occurrence: US)
  Receive Date: 20200831
  Receipt Date: 20200831
  Transmission Date: 20201103
  Serious: Yes (Hospitalization)
  Sender: FDA-Public Use
  Company Number: US-HBP-2020US020983

PATIENT
  Sex: Male

DRUGS (18)
  1. VITAMIN B12 [Concomitant]
     Active Substance: CYANOCOBALAMIN
  2. TARGRETIN [Concomitant]
     Active Substance: BEXAROTENE
  3. METOPROLOL. [Concomitant]
     Active Substance: METOPROLOL
  4. VALCHLOR [Suspect]
     Active Substance: MECHLORETHAMINE
     Indication: CUTANEOUS T-CELL LYMPHOMA
     Dosage: UNK, QD
     Route: 061
     Dates: start: 20151128
  5. VITAMIN B?100 COMPLEX [Concomitant]
  6. QUINAPRIL. [Concomitant]
     Active Substance: QUINAPRIL
  7. GABAPENTIN. [Concomitant]
     Active Substance: GABAPENTIN
  8. HYDROCHLOROTHIAZIDE. [Concomitant]
     Active Substance: HYDROCHLOROTHIAZIDE
  9. ATORVASTATIN [Concomitant]
     Active Substance: ATORVASTATIN
  10. ASPIRIN                            /00002701/ [Concomitant]
     Active Substance: ASPIRIN
  11. CHROMIUM [Concomitant]
     Active Substance: CHROMIC CHLORIDE\CHROMIUM
  12. ALLOPURINOL. [Concomitant]
     Active Substance: ALLOPURINOL
  13. MELATONIN [Concomitant]
     Active Substance: MELATONIN
  14. VITAMIN D3 [Concomitant]
     Active Substance: CHOLECALCIFEROL
  15. FISH OIL [Concomitant]
     Active Substance: FISH OIL
  16. CLONAZEPAM. [Concomitant]
     Active Substance: CLONAZEPAM
  17. SPIRONOLACTONE. [Concomitant]
     Active Substance: SPIRONOLACTONE
  18. CALCIUM [Concomitant]
     Active Substance: CALCIUM

REACTIONS (2)
  - Skin ulcer [Recovering/Resolving]
  - Skin graft [Recovering/Resolving]
